FAERS Safety Report 16024627 (Version 1)
Quarter: 2019Q1

REPORT INFORMATION
  Report Type: Spontaneous
  Country: AU (occurrence: AU)
  Receive Date: 20190301
  Receipt Date: 20190301
  Transmission Date: 20190418
  Serious: Yes (Other)
  Sender: FDA-Public Use
  Company Number: AU-MYLANLABS-2019M1018263

PATIENT
  Age: 9 Decade
  Sex: Male

DRUGS (3)
  1. RESPRIM TABLET [Suspect]
     Active Substance: SULFAMETHOXAZOLE\TRIMETHOPRIM
     Indication: LOCALISED INFECTION
     Dosage: UNK
  2. TENORMIN [Concomitant]
     Active Substance: ATENOLOL
     Dosage: UNK
  3. ATACAND [Concomitant]
     Active Substance: CANDESARTAN CILEXETIL
     Dosage: UNK

REACTIONS (3)
  - Pulse abnormal [Unknown]
  - Pulse absent [None]
  - Blood pressure fluctuation [Unknown]

NARRATIVE: CASE EVENT DATE: 20190225
